FAERS Safety Report 5480771-6 (Version None)
Quarter: 2007Q4

REPORT INFORMATION
  Report Type: 
  Country: None (occurrence: None)
  Receive Date: 20071009
  Receipt Date: 20070928
  Transmission Date: 20080405
  Serious: Yes (Hospitalization)
  Sender: FDA-Public Use
  Company Number: PL-SHR-PL-2005-018367

PATIENT
  Age: 23 Year
  Sex: Male

DRUGS (13)
  1. BETAFERON [Suspect]
     Indication: RELAPSING-REMITTING MULTIPLE SCLEROSIS
     Dosage: 16 MIU, EVERY 2D
     Route: 058
     Dates: start: 20041103, end: 20050517
  2. BETAFERON [Suspect]
     Dosage: UNK MIU, EVERY 2D
     Route: 058
     Dates: start: 20050530, end: 20050723
  3. BETAFERON [Suspect]
     Dosage: UNK MIU, EVERY 2D
     Route: 058
     Dates: start: 20050802, end: 20050827
  4. METHYLPREDNISOLONE [Concomitant]
     Indication: MULTIPLE SCLEROSIS RELAPSE
     Dosage: 500 MG, 1 DOSE
     Route: 048
     Dates: start: 20040806, end: 20040810
  5. RISPEN [Concomitant]
     Indication: DEPRESSION
     Dosage: .5 MG, 1 DOSE
     Route: 048
     Dates: start: 20050329, end: 20050402
  6. RISPEN [Concomitant]
     Dosage: 1 MG, 1 DOSE
     Route: 048
     Dates: start: 20050726, end: 20050825
  7. IMIPRAMINE [Concomitant]
     Indication: DEPRESSION
     Dosage: 25 MG, 1 DOSE
     Route: 048
     Dates: start: 20050519, end: 20050825
  8. FLUOXETINE [Concomitant]
     Indication: DEPRESSION
     Dosage: 20 MG, 1 DOSE
     Route: 048
     Dates: start: 20050519, end: 20050719
  9. BROMAZEPAM [Concomitant]
     Indication: DEPRESSION
     Dosage: 3 MG, AS REQ'D
     Route: 048
     Dates: start: 20050519, end: 20050825
  10. BROMAZEPAM [Concomitant]
     Dosage: 50 MG, 1 DOSE
     Route: 048
     Dates: start: 20050724, end: 20050725
  11. BROMAZEPAM [Concomitant]
     Dosage: 50 MG, 2X/DAY
     Route: 048
     Dates: start: 20050726, end: 20050825
  12. SULPIRIDE [Concomitant]
     Indication: DEPRESSION
     Dosage: 50 MG, 2X/DAY
     Route: 048
     Dates: start: 20050506, end: 20050519
  13. NAPROXEN [Concomitant]
     Dosage: 250 MG, 1 DOSE
     Route: 048
     Dates: start: 20050726, end: 20050825

REACTIONS (1)
  - BIPOLAR I DISORDER [None]
